FAERS Safety Report 8623700 (Version 4)
Quarter: 2012Q4

REPORT INFORMATION
  Report Type: 
  Country: US (occurrence: US)
  Receive Date: 20120620
  Receipt Date: 20120913
  Transmission Date: 20130627
  Serious: No
  Sender: FDA-Public Use
  Company Number: US-PFIZER INC-2012147259

PATIENT
  Age: 53 Year
  Sex: Female
  Weight: 96.15 kg

DRUGS (13)
  1. LYRICA [Suspect]
     Dosage: 75mg , (2 in the morning, 2 at bedtime)
     Route: 048
     Dates: start: 2010, end: 201206
  2. LYRICA [Suspect]
     Dosage: 150 mg, 2x/day
     Dates: start: 201206
  3. LYRICA [Suspect]
     Dosage: 75 mg, 4x/day
     Dates: start: 201206
  4. PERCOCET [Concomitant]
     Dosage: UNK
  5. PERCODAN [Concomitant]
     Dosage: UNK
  6. CODEINE [Concomitant]
     Dosage: UNK
  7. NORCO [Concomitant]
     Indication: SYSTEMIC LUPUS ERYTHEMATOSUS
     Dosage: 325/10 mg, 6x/day
  8. LORAZEPAM [Concomitant]
     Indication: ANXIETY
     Dosage: 1 mg, 3x/day
  9. CARVEDILOL [Concomitant]
     Indication: HYPERTENSION
     Dosage: 2.5 mg, 2x/day
  10. AMLODIPINE [Concomitant]
     Indication: HYPERTENSION
     Dosage: 10 mg, 1x/day
  11. LISINOPRIL [Concomitant]
     Indication: HYPERTENSION
     Dosage: 40 mg, 1x/day
  12. RANITIDINE [Concomitant]
     Indication: GASTROOESOPHAGEAL REFLUX DISEASE
     Dosage: 150 mg, 2x/day
  13. CYCLOBENZAPRINE [Concomitant]
     Dosage: 10 mg, 3x/day

REACTIONS (7)
  - Somnolence [Unknown]
  - Drug intolerance [Unknown]
  - Drug ineffective [Unknown]
  - Vision blurred [Unknown]
  - Balance disorder [Unknown]
  - Inappropriate schedule of drug administration [Unknown]
  - Oedema peripheral [Recovered/Resolved]
